FAERS Safety Report 8241401-3 (Version None)
Quarter: 2012Q1

REPORT INFORMATION
  Report Type: 
  Country: None (occurrence: None)
  Receive Date: 20120328
  Receipt Date: 20120320
  Transmission Date: 20120608
  Serious: Yes (Hospitalization)
  Sender: FDA-Public Use
  Company Number: US-ALEXION PHARMACEUTICALS INC.-A201200491

PATIENT
  Sex: Male

DRUGS (8)
  1. METHOTREXATE [Concomitant]
     Indication: RHEUMATOID ARTHRITIS
     Dosage: UNK
  2. COUMADIN [Concomitant]
     Dosage: UNK
  3. SOLIRIS [Suspect]
     Dosage: 1500 MG, Q12 DAYS
     Route: 042
  4. FOLIC ACID [Concomitant]
     Dosage: UNK
  5. AMBIEN [Concomitant]
     Dosage: UNK
  6. ANDROGEL [Concomitant]
     Indication: BLOOD TESTOSTERONE DECREASED
     Dosage: UNK
  7. PREDNISONE BIOGARAN [Concomitant]
     Indication: RHEUMATOID ARTHRITIS
     Dosage: UNK
  8. SOLIRIS [Suspect]
     Indication: PAROXYSMAL NOCTURNAL HAEMOGLOBINURIA
     Dosage: 600 MG, UNK
     Route: 042
     Dates: start: 20091001

REACTIONS (4)
  - HAEMOGLOBIN DECREASED [None]
  - CHOLECYSTITIS [None]
  - ABDOMINAL PAIN UPPER [None]
  - VOMITING [None]
